FAERS Safety Report 13194962 (Version 1)
Quarter: 2017Q1

REPORT INFORMATION
  Report Type: Report from Study
  Country: US (occurrence: US)
  Receive Date: 20170207
  Receipt Date: 20170207
  Transmission Date: 20170428
  Serious: Yes (Other)
  Sender: FDA-Public Use
  Company Number: US-GILEAD-2017-0256272

PATIENT
  Age: 66 Year
  Sex: Female

DRUGS (8)
  1. MORPHINE [Concomitant]
     Active Substance: MORPHINE
  2. CODEINE [Concomitant]
     Active Substance: CODEINE
  3. CIPROFLOXACIN. [Concomitant]
     Active Substance: CIPROFLOXACIN
  4. EPINEPHRINE. [Concomitant]
     Active Substance: EPINEPHRINE
  5. IDELALISIB [Suspect]
     Active Substance: IDELALISIB
     Indication: PRODUCT USED FOR UNKNOWN INDICATION
     Dosage: UNK
     Route: 065
  6. ZITHROMAX [Concomitant]
     Active Substance: AZITHROMYCIN DIHYDRATE
  7. IMBRUVICA [Concomitant]
     Active Substance: IBRUTINIB
  8. NAPROXEN. [Concomitant]
     Active Substance: NAPROXEN

REACTIONS (1)
  - Internal haemorrhage [Unknown]

NARRATIVE: CASE EVENT DATE: 201502
